FAERS Safety Report 10547048 (Version 1)
Quarter: 2014Q4

REPORT INFORMATION
  Report Type: Report from Study
  Country: US (occurrence: US)
  Receive Date: 20141027
  Receipt Date: 20141027
  Transmission Date: 20150529
  Serious: No
  Sender: FDA-Public Use
  Company Number: US-ABBVIE-14P-163-1254225-00

PATIENT
  Age: 28 Year
  Sex: Female
  Weight: 57.2 kg

DRUGS (2)
  1. LUPRON DEPOT [Suspect]
     Active Substance: LEUPROLIDE ACETATE
     Indication: ENDOMETRIOSIS
     Route: 050
     Dates: start: 20140624
  2. PRILOSEC [Concomitant]
     Active Substance: OMEPRAZOLE MAGNESIUM
     Indication: GASTROOESOPHAGEAL REFLUX DISEASE
     Route: 048

REACTIONS (3)
  - Vaginal inflammation [Not Recovered/Not Resolved]
  - Micturition urgency [Not Recovered/Not Resolved]
  - Micturition disorder [Not Recovered/Not Resolved]

NARRATIVE: CASE EVENT DATE: 20140627
